FAERS Safety Report 8770699 (Version 7)
Quarter: 2015Q2

REPORT INFORMATION
  Report Type: Spontaneous
  Country: US (occurrence: US)
  Receive Date: 20120906
  Receipt Date: 20150626
  Transmission Date: 20150821
  Serious: Yes (Hospitalization, Other)
  Sender: FDA-Public Use
  Company Number: US-UCBSA-064207

PATIENT
  Age: 49 Year
  Sex: Female

DRUGS (19)
  1. XYREM [Suspect]
     Active Substance: SODIUM OXYBATE
     Indication: NARCOLEPSY
     Dosage: NIGHTLY
     Route: 048
     Dates: start: 20120814, end: 20120814
  2. XYREM [Suspect]
     Active Substance: SODIUM OXYBATE
     Dosage: TWICE NIGHTLY
     Route: 048
     Dates: start: 20120815, end: 201208
  3. ABILIFY [Suspect]
     Active Substance: ARIPIPRAZOLE
     Indication: BIPOLAR DISORDER
     Dosage: 30 MG, ONCE DAILY (QD)
     Dates: end: 201207
  4. PRISTIQ EXTENDED RELEASE [Suspect]
     Active Substance: DESVENLAFAXINE SUCCINATE
     Indication: BIPOLAR DISORDER
     Dosage: 100 MG, ONCE DAILY (QD)
  5. XYREM [Suspect]
     Active Substance: SODIUM OXYBATE
     Indication: CATAPLEXY
     Dosage: 2.5 G, 2X/DAY (BID)
     Route: 048
     Dates: start: 20120725, end: 20120813
  6. MELOXICAM. [Suspect]
     Active Substance: MELOXICAM
     Dosage: 15 MG, ONCE DAILY (QD)
  7. GABAPENTIN. [Suspect]
     Active Substance: GABAPENTIN
     Dosage: 300 MG, 3X/DAY (TID)
  8. PRISTIQ EXTENDED RELEASE [Suspect]
     Active Substance: DESVENLAFAXINE SUCCINATE
     Dosage: 100 MG, EV 3 DAYS
     Dates: end: 20120802
  9. XYREM [Suspect]
     Active Substance: SODIUM OXYBATE
     Dosage: 2.25 G, 2X/DAY (BID), TWICE NIGHTLY
     Route: 048
     Dates: start: 20120915, end: 2012
  10. XYREM [Suspect]
     Active Substance: SODIUM OXYBATE
     Dosage: 4.5 G, 2X/DAY (BID), TWICE NIGHTLY
     Route: 048
     Dates: start: 201304, end: 2013
  11. CLONAZEPAM. [Suspect]
     Active Substance: CLONAZEPAM
     Dosage: .5 MG, 2X/DAY (BID)
  12. VITAMIN D3 [Suspect]
     Active Substance: CHOLECALCIFEROL
     Dosage: 1000 IU, ONCE DAILY (QD)
  13. ABILIFY [Suspect]
     Active Substance: ARIPIPRAZOLE
     Dosage: 30 MG, ONCE DAILY (QD)
     Dates: start: 201208
  14. PRISTIQ EXTENDED RELEASE [Suspect]
     Active Substance: DESVENLAFAXINE SUCCINATE
     Dosage: 100 MG, ONCE DAILY (QD)
     Dates: start: 201208
  15. SIMVASTATIN. [Suspect]
     Active Substance: SIMVASTATIN
     Dosage: 40 MG, ONCE DAILY (QD)
  16. METHYLPHENIDATE HYDROCHLORIDE. [Suspect]
     Active Substance: METHYLPHENIDATE HYDROCHLORIDE
     Dosage: 10 MG, 3X/DAY (TID)
     Route: 048
  17. HYDROCODONE BITARTRATE AND ACETAMINOPHEN [Suspect]
     Active Substance: ACETAMINOPHEN\HYDROCODONE BITARTRATE
     Dosage: UNK UNK, 3X/DAY (TID)
  18. BACLOFEN. [Suspect]
     Active Substance: BACLOFEN
     Dosage: 10 MG, 3X/DAY (TID)
  19. XYREM [Suspect]
     Active Substance: SODIUM OXYBATE
     Dosage: TWICE NIGHTLY
     Route: 048
     Dates: start: 20120823, end: 20120829

REACTIONS (17)
  - Suicidal ideation [Recovered/Resolved]
  - Malaise [Unknown]
  - Fatigue [Recovered/Resolved]
  - Bile duct obstruction [Recovered/Resolved]
  - Bilirubinuria [Recovered/Resolved]
  - Eructation [Unknown]
  - Hepatic enzyme increased [Recovering/Resolving]
  - Aerophagia [Unknown]
  - Dysphagia [Unknown]
  - Panic attack [Recovered/Resolved]
  - Nervousness [Recovered/Resolved]
  - Decreased appetite [Unknown]
  - Hyperhidrosis [Recovered/Resolved]
  - Cholelithiasis [Recovered/Resolved]
  - Depression [Recovered/Resolved]
  - Insomnia [Recovered/Resolved]
  - Stress [Unknown]

NARRATIVE: CASE EVENT DATE: 201207
